FAERS Safety Report 7601734-8 (Version None)
Quarter: 2011Q2

REPORT INFORMATION
  Report Type: 
  Country: None (occurrence: None)
  Receive Date: 20110629
  Receipt Date: 20110324
  Transmission Date: 20111010
  Serious: Yes (Other)
  Sender: FDA-Public Use
  Company Number: 767532

PATIENT
  Age: 84 Year
  Sex: Female

DRUGS (1)
  1. KLONOPIN [Suspect]
     Indication: PRODUCT USED FOR UNKNOWN INDICATION

REACTIONS (4)
  - HYPERTENSION [None]
  - DRUG DEPENDENCE [None]
  - HEART RATE INCREASED [None]
  - DRY MOUTH [None]
